FAERS Safety Report 6552238-5 (Version None)
Quarter: 2010Q1

REPORT INFORMATION
  Report Type: 
  Country: None (occurrence: None)
  Receive Date: 20100121
  Receipt Date: 20100106
  Transmission Date: 20100710
  Serious: Yes (Life-Threatening, Other)
  Sender: FDA-Public Use
  Company Number: 20100002

PATIENT
  Age: 50 Day
  Sex: Male

DRUGS (3)
  1. CEFTRIAXONE [Suspect]
     Indication: URINARY TRACT INFECTION
     Dosage: 50 MG/KG INTRAVENOUS
     Route: 042
  2. CALCIUM CONTAINING HYPERALIMENTATION [Suspect]
  3. GENTAMICIN [Concomitant]

REACTIONS (8)
  - ANAPHYLACTIC REACTION [None]
  - APNOEA [None]
  - CARDIAC DISORDER [None]
  - DRUG EXPOSURE DURING PREGNANCY [None]
  - LIVER DISORDER [None]
  - LUNG DISORDER [None]
  - RENAL DISORDER [None]
  - SHOCK [None]
